FAERS Safety Report 5031507-4 (Version None)
Quarter: 2006Q2

REPORT INFORMATION
  Report Type: 
  Country: None (occurrence: None)
  Receive Date: 20060616
  Receipt Date: 20060603
  Transmission Date: 20061013
  Serious: Yes (Other)
  Sender: FDA-Public Use
  Company Number: 2006PV014905

PATIENT
  Age: 54 Year
  Sex: Male
  Weight: 154.223 kg

DRUGS (8)
  1. BYETTA [Suspect]
     Indication: DIABETES MELLITUS NON-INSULIN-DEPENDENT
     Dosage: 10 MCG; BID; SC; SEE IMAGE
     Route: 058
     Dates: start: 20050824, end: 20051001
  2. BYETTA [Suspect]
     Indication: DIABETES MELLITUS NON-INSULIN-DEPENDENT
     Dosage: 10 MCG; BID; SC; SEE IMAGE
     Route: 058
     Dates: start: 20051001
  3. AVANDIA [Concomitant]
  4. GLUCOTROL XL [Concomitant]
  5. FLONASE [Concomitant]
  6. FLOMAX [Concomitant]
  7. LEXAPRO [Concomitant]
  8. CRESTOR [Concomitant]

REACTIONS (4)
  - CEREBRAL ARTERY OCCLUSION [None]
  - CEREBROVASCULAR ACCIDENT [None]
  - FATIGUE [None]
  - LACUNAR INFARCTION [None]
